FAERS Safety Report 6114510-2 (Version None)
Quarter: 2009Q1

REPORT INFORMATION
  Report Type: 
  Country: None (occurrence: None)
  Receive Date: 20090313
  Receipt Date: 20090309
  Transmission Date: 20090719
  Serious: Yes (Hospitalization)
  Sender: FDA-Public Use
  Company Number: JP-BRISTOL-MYERS SQUIBB COMPANY-14480669

PATIENT
  Age: 53 Year
  Sex: Female

DRUGS (2)
  1. KENACORT [Suspect]
     Indication: EYE OPERATION
     Route: 031
     Dates: start: 20071207, end: 20071207
  2. KENACORT [Suspect]
     Indication: ANTIINFLAMMATORY THERAPY
     Route: 031
     Dates: start: 20071207, end: 20071207

REACTIONS (1)
  - RETINAL VASCULITIS [None]
